FAERS Safety Report 10347665 (Version 1)
Quarter: 2014Q3

REPORT INFORMATION
  Report Type: Spontaneous
  Country: US (occurrence: US)
  Receive Date: 20140729
  Receipt Date: 20140729
  Transmission Date: 20150326
  Serious: Yes (Other)
  Sender: FDA-Public Use
  Company Number: US-ACTAVIS-2014-16092

PATIENT
  Age: 59 Year
  Sex: Male
  Weight: 93 kg

DRUGS (3)
  1. SAW PALMETTO STANDARDIZED EXTRACT [Concomitant]
     Indication: PROSTATOMEGALY
     Dosage: 1800 MG, TID
     Route: 048
  2. TAMSULOSIN [Concomitant]
     Active Substance: TAMSULOSIN
     Indication: BENIGN PROSTATIC HYPERPLASIA
     Dosage: 0.4 MG, QD
     Route: 048
  3. CLOTRIMAZOLE-BETAMETHASONE (AMALLC) [Suspect]
     Active Substance: BETAMETHASONE\CLOTRIMAZOLE
     Indication: TINEA PEDIS
     Dosage: 1 %, BID
     Route: 061
     Dates: start: 20140701, end: 20140703

REACTIONS (2)
  - Drug ineffective [Not Recovered/Not Resolved]
  - Skin exfoliation [Not Recovered/Not Resolved]

NARRATIVE: CASE EVENT DATE: 20140701
